FAERS Safety Report 9735514 (Version 2)
Quarter: 2015Q3

REPORT INFORMATION
  Report Type: Spontaneous
  Country: US (occurrence: US)
  Receive Date: 20131206
  Receipt Date: 20150804
  Transmission Date: 20151125
  Serious: No
  Sender: FDA-Public Use
  Company Number: US-GILEAD-2009-0023467

PATIENT
  Age: 82 Year
  Sex: Female
  Weight: 58.97 kg

DRUGS (8)
  1. LASIX [Concomitant]
     Active Substance: FUROSEMIDE
  2. LETAIRIS [Suspect]
     Active Substance: AMBRISENTAN
     Indication: PULMONARY ARTERIAL HYPERTENSION
     Route: 048
     Dates: start: 20090416
  3. HYDROCHLOROTHIAZIDE/TRIAMTERENE [Concomitant]
  4. CELEBREX [Concomitant]
     Active Substance: CELECOXIB
  5. SYNTHROID [Concomitant]
     Active Substance: LEVOTHYROXINE SODIUM
  6. ASPIRIN. [Concomitant]
     Active Substance: ASPIRIN
  7. OXYGEN. [Concomitant]
     Active Substance: OXYGEN
  8. DILACOR [Concomitant]

REACTIONS (2)
  - Swelling [Not Recovered/Not Resolved]
  - Fluid retention [Not Recovered/Not Resolved]
